FAERS Safety Report 5388525-6 (Version None)
Quarter: 2007Q3

REPORT INFORMATION
  Report Type: 
  Country: None (occurrence: None)
  Receive Date: 20070716
  Receipt Date: 20070704
  Transmission Date: 20080115
  Serious: Yes (Death, Hospitalization)
  Sender: FDA-Public Use
  Company Number: FR-PFIZER INC-2006001488

PATIENT
  Sex: Female
  Weight: 39 kg

DRUGS (4)
  1. SU-011,248 [Suspect]
     Indication: RENAL CELL CARCINOMA STAGE UNSPECIFIED
     Route: 048
     Dates: start: 20051124, end: 20051207
  2. METHYLPREDNISOLONE [Concomitant]
     Route: 042
     Dates: start: 20051229, end: 20051230
  3. SODIUM CHLORIDE [Concomitant]
     Dosage: TEXT:0.9%
     Route: 042
     Dates: start: 20051229, end: 20051230
  4. OROKEN [Concomitant]
     Route: 048
     Dates: start: 20051221, end: 20051223

REACTIONS (3)
  - ASTHENIA [None]
  - DYSPHAGIA [None]
  - TRACHEAL FISTULA [None]
